FAERS Safety Report 20976286 (Version 1)
Quarter: 2022Q2

REPORT INFORMATION
  Report Type: Spontaneous
  Country: US (occurrence: None)
  Receive Date: 20220617
  Receipt Date: 20220617
  Transmission Date: 20220721
  Serious: No
  Sender: FDA-Public Use
  Company Number: None

PATIENT
  Sex: Female

DRUGS (1)
  1. ICATIBANT ACETATE [Suspect]
     Active Substance: ICATIBANT ACETATE
     Indication: Complement deficiency disease
     Dosage: OTHER QUANTITY : 30MG/3ML;?FREQUENCY : AS NEEDED;?
     Route: 030
     Dates: start: 20220526

REACTIONS (2)
  - Swollen tongue [None]
  - Abdominal distension [None]
